FAERS Safety Report 15470010 (Version 1)
Quarter: 2018Q4

REPORT INFORMATION
  Report Type: Spontaneous
  Country: CA (occurrence: CA)
  Receive Date: 20181005
  Receipt Date: 20181005
  Transmission Date: 20190205
  Serious: Yes (Hospitalization)
  Sender: FDA-Public Use
  Company Number: CA-ASTRAZENECA-2018SF29758

PATIENT
  Sex: Female

DRUGS (1)
  1. DAXAS [Suspect]
     Active Substance: ROFLUMILAST
     Dosage: 500MCG ONCE DAILY
     Route: 048

REACTIONS (2)
  - Chronic obstructive pulmonary disease [Unknown]
  - Bronchitis chronic [Unknown]
